FAERS Safety Report 6213227-3 (Version None)
Quarter: 2009Q2

REPORT INFORMATION
  Report Type: 
  Country: None (occurrence: None)
  Receive Date: 20090601
  Receipt Date: 20090601
  Transmission Date: 20091009
  Serious: Yes (Disabling, Other)
  Sender: FDA-Public Use
  Company Number: None

PATIENT
  Age: 30 Year
  Sex: Female
  Weight: 88.4514 kg

DRUGS (2)
  1. LAMOTRIGINE [Suspect]
     Indication: BIPOLAR DISORDER
     Dosage: 50MG 2X A DAY PO APPROX 3 MONTHS
     Route: 048
  2. LAMOTRIGINE [Suspect]
     Indication: MOOD SWINGS
     Dosage: 50MG 2X A DAY PO APPROX 3 MONTHS
     Route: 048

REACTIONS (1)
  - ALOPECIA [None]
